FAERS Safety Report 25118847 (Version 1)
Quarter: 2025Q1

REPORT INFORMATION
  Report Type: Spontaneous
  Country: US (occurrence: None)
  Receive Date: 20250325
  Receipt Date: 20250325
  Transmission Date: 20250408
  Serious: Yes (Life-Threatening, Other)
  Sender: FDA-CTU
  Company Number: None

PATIENT
  Age: 49 Year
  Sex: Female
  Weight: 69.75 kg

DRUGS (2)
  1. TRAMADOL [Suspect]
     Active Substance: TRAMADOL
     Indication: Pain
     Route: 048
     Dates: start: 20191018, end: 20191019
  2. TRAMADOL [Suspect]
     Active Substance: TRAMADOL
     Indication: Headache

REACTIONS (3)
  - Blood glucose decreased [None]
  - Tremor [None]
  - Hyperhidrosis [None]

NARRATIVE: CASE EVENT DATE: 20191018
